FAERS Safety Report 10730226 (Version 1)
Quarter: 2015Q1

REPORT INFORMATION
  Report Type: Spontaneous
  Country: JP (occurrence: JP)
  Receive Date: 20150122
  Receipt Date: 20150122
  Transmission Date: 20150721
  Serious: Yes (Other)
  Sender: FDA-Public Use
  Company Number: JP-GLAXOSMITHKLINE-JP2015JPN004781

PATIENT
  Age: 88 Year
  Sex: Female

DRUGS (6)
  1. ARTIST [Concomitant]
     Active Substance: CARVEDILOL
     Dosage: 2.5 MG, BID
  2. VALTREX [Suspect]
     Active Substance: VALACYCLOVIR HYDROCHLORIDE
     Indication: VIITH NERVE PARALYSIS
     Dosage: 500 MG, QOD
     Route: 048
     Dates: start: 20150107, end: 20150111
  3. BAYASPIRIN [Concomitant]
     Active Substance: ASPIRIN
     Dosage: 100 MG, QD
     Dates: start: 2002
  4. CALTAN [Concomitant]
     Active Substance: CALCIUM CARBONATE
     Dosage: 50 MG, TID
  5. GASTER [Concomitant]
     Active Substance: FAMOTIDINE
     Dosage: 10 MG, QD
     Dates: start: 2002
  6. NEOMALLERMIN-TR [Concomitant]
     Dosage: 6 MG, BID

REACTIONS (1)
  - Altered state of consciousness [Unknown]

NARRATIVE: CASE EVENT DATE: 20150111
